FAERS Safety Report 9460617 (Version 1)
Quarter: 2013Q3

REPORT INFORMATION
  Report Type: Spontaneous
  Country: DE (occurrence: DE)
  Receive Date: 20130815
  Receipt Date: 20130815
  Transmission Date: 20140515
  Serious: Yes (Hospitalization, Other)
  Sender: FDA-Public Use
  Company Number: DE-ABBOTT-13P-062-1133095-00

PATIENT
  Age: 27 Year
  Sex: Female

DRUGS (1)
  1. HUMIRA [Suspect]
     Indication: CROHN^S DISEASE
     Route: 058
     Dates: start: 20111014, end: 20130322

REACTIONS (3)
  - Abortion spontaneous [Unknown]
  - Tonsillectomy [Not Recovered/Not Resolved]
  - Crohn^s disease [Not Recovered/Not Resolved]
